FAERS Safety Report 4536840-8 (Version None)
Quarter: 2004Q4

REPORT INFORMATION
  Report Type: 
  Country: None (occurrence: None)
  Receive Date: 20041223
  Receipt Date: 20041116
  Transmission Date: 20050328
  Serious: Yes (Hospitalization)
  Sender: FDA-Public Use
  Company Number: KDL026919

PATIENT
  Age: 47 Year
  Sex: Male
  Weight: 66.7 kg

DRUGS (11)
  1. TRIZIVIR [Suspect]
     Indication: HIV INFECTION
     Route: 065
  2. PROCRIT [Suspect]
     Indication: ANAEMIA
     Dosage: 40000U WEEKLY
     Route: 042
     Dates: start: 20020401, end: 20020925
  3. RIBAVIRIN [Suspect]
     Indication: DRUG USE FOR UNKNOWN INDICATION
     Route: 065
  4. INTERFERON ALFA-2B [Suspect]
     Indication: DRUG USE FOR UNKNOWN INDICATION
     Route: 065
  5. UNKNOWN MEDICATION [Concomitant]
     Route: 065
     Dates: start: 19990601
  6. ABACAVIR [Concomitant]
     Route: 065
     Dates: start: 19990601
  7. EFAVIRENZ [Concomitant]
     Indication: HIV INFECTION
     Route: 065
  8. TENOFOVIR DISOPROXIL FUMARATE [Concomitant]
     Route: 065
  9. ANDROGEL [Concomitant]
  10. OXANDRIN [Concomitant]
  11. ANTIVIRAL [Concomitant]
     Indication: HEPATITIS C

REACTIONS (3)
  - APLASIA PURE RED CELL [None]
  - DRUG INTERACTION [None]
  - WHITE BLOOD CELL COUNT DECREASED [None]
